FAERS Safety Report 8859537 (Version 1)
Quarter: 2012Q4

REPORT INFORMATION
  Report Type: 
  Country: US (occurrence: US)
  Receive Date: 20121024
  Receipt Date: 20121024
  Transmission Date: 20130627
  Serious: No
  Sender: FDA-Public Use
  Company Number: US-TEVA-366303USA

PATIENT
  Sex: Female
  Weight: 90.8 kg

DRUGS (3)
  1. NUVIGIL [Suspect]
     Indication: HYPERSOMNIA
     Dosage: 150 Milligram Daily; QAM
     Route: 048
     Dates: start: 201208
  2. ZOLOFT [Suspect]
  3. ORAL CONTRACEPTIVE NOS [Concomitant]
     Dates: start: 201201

REACTIONS (6)
  - Headache [Not Recovered/Not Resolved]
  - Nausea [Recovered/Resolved]
  - Eating disorder [Not Recovered/Not Resolved]
  - Dry mouth [Not Recovered/Not Resolved]
  - Dyskinesia [Recovered/Resolved]
  - Thirst [Recovered/Resolved]
